FAERS Safety Report 18351663 (Version 1)
Quarter: 2020Q4

REPORT INFORMATION
  Report Type: Spontaneous
  Country: JP (occurrence: JP)
  Receive Date: 20201006
  Receipt Date: 20201006
  Transmission Date: 20210114
  Serious: Yes (Hospitalization, Other)
  Sender: FDA-Public Use
  Company Number: JP-ASTRAZENECA-2020SF28635

PATIENT
  Age: 85 Year
  Sex: Male

DRUGS (1)
  1. IMFINZI [Suspect]
     Active Substance: DURVALUMAB
     Indication: NON-SMALL CELL LUNG CANCER
     Dosage: 10 MG/KG DDMINISTRATION ONCE DURING HOSPITALISATION OF TWO NIGHTS AND THREE DAYS
     Route: 041
     Dates: start: 20200827, end: 2020

REACTIONS (5)
  - Delirium [Recovering/Resolving]
  - General physical health deterioration [Unknown]
  - Bedridden [Unknown]
  - Suicidal ideation [Recovering/Resolving]
  - Pyrexia [Not Recovered/Not Resolved]

NARRATIVE: CASE EVENT DATE: 2020
